FAERS Safety Report 8478553 (Version 4)
Quarter: 2013Q4

REPORT INFORMATION
  Report Type: Report from Study
  Country: VE (occurrence: VE)
  Receive Date: 20120327
  Receipt Date: 20131115
  Transmission Date: 20140711
  Serious: Yes (Hospitalization, Other)
  Sender: FDA-Public Use
  Company Number: PHHY2012VE025528

PATIENT
  Age: 50 Year
  Sex: Female

DRUGS (3)
  1. ACLASTA [Suspect]
     Indication: OSTEOPOROSIS
     Dosage: 5 MG, ANNUALLY
     Route: 042
     Dates: start: 201011
  2. CONCOR [Concomitant]
     Indication: TACHYCARDIA
     Dosage: 5 MG, QD
     Route: 048
     Dates: start: 2002
  3. GLUCOFAGE [Concomitant]
     Indication: DIABETES MELLITUS
     Dosage: 850 MG, BID
     Route: 048
     Dates: start: 2000

REACTIONS (17)
  - Mononucleosis syndrome [Unknown]
  - Asthenia [Unknown]
  - Decreased immune responsiveness [Unknown]
  - White blood cell count decreased [Recovered/Resolved]
  - Bone infarction [Not Recovered/Not Resolved]
  - Bone cancer [Unknown]
  - Pain in extremity [Recovered/Resolved]
  - Dysstasia [Unknown]
  - Asphyxia [Recovered/Resolved]
  - Tachycardia [Recovered/Resolved]
  - Mobility decreased [Recovered/Resolved]
  - Dyspnoea [Recovering/Resolving]
  - Hypersensitivity [Recovering/Resolving]
  - Feeling abnormal [Unknown]
  - Muscular weakness [Unknown]
  - Bone pain [Recovered/Resolved]
  - Dizziness [Recovered/Resolved]
